FAERS Safety Report 6432839-5 (Version None)
Quarter: 2009Q4

REPORT INFORMATION
  Report Type: 
  Country: None (occurrence: None)
  Receive Date: 20091109
  Receipt Date: 20091028
  Transmission Date: 20100525
  Serious: Yes (Life-Threatening, Hospitalization, Other)
  Sender: FDA-Public Use
  Company Number: B0600236A

PATIENT
  Sex: Female
  Weight: 89 kg

DRUGS (4)
  1. AVANDIA [Suspect]
     Indication: DIABETES MELLITUS
     Dosage: 4MG PER DAY
     Route: 065
     Dates: start: 20071001
  2. INDAPAMID [Concomitant]
     Dosage: 1.5MG PER DAY
     Route: 065
     Dates: start: 20010104
  3. CORDARONE [Concomitant]
     Indication: CORONARY ARTERY DISEASE
     Dosage: 200MG PER DAY
     Route: 065
     Dates: start: 20071001
  4. INSULIN GLARGINE [Concomitant]
     Indication: DIABETES MELLITUS
     Dosage: 12IU PER DAY
     Route: 058
     Dates: start: 20050301

REACTIONS (2)
  - ASTHENIA [None]
  - PANCYTOPENIA [None]
